FAERS Safety Report 5401967-5 (Version None)
Quarter: 2007Q3

REPORT INFORMATION
  Report Type: 
  Country: None (occurrence: None)
  Receive Date: 20070726
  Receipt Date: 20070612
  Transmission Date: 20080115
  Serious: Yes (Life-Threatening, Disabling)
  Sender: FDA-Public Use
  Company Number: 6035070

PATIENT
  Age: 50 Year
  Sex: Female

DRUGS (19)
  1. CIPROFLOXACIN [Suspect]
     Indication: URINARY TRACT INFECTION
     Dosage: (500 MG) ORAL
     Route: 048
     Dates: start: 20070508, end: 20070516
  2. ATORVASTATIN CALCIUM [Concomitant]
  3. CEFUROXIME [Concomitant]
  4. CITALOPRAM HYDROBROMIDE [Concomitant]
  5. CORSODYL (CHLORHEXIDINE GLUCONATE) [Concomitant]
  6. CO-TENIDONE (CHLORTALIDONE, ATENOLOL) [Concomitant]
  7. FUROSEMIDE [Concomitant]
  8. HUMAN MIXTARD (INSULIN INJECTION, BIPHASIC) [Concomitant]
  9. HYDROCORTISONE [Concomitant]
  10. LACTULOSE [Concomitant]
  11. METRONIDAZOLE [Concomitant]
  12. OMEPRAZOLE [Concomitant]
  13. PABRINEX (ASCORBIC ACID, PYRIDOXINE HYDROCHLORIDE, THIAMINE HYDROCHLOR [Concomitant]
  14. PREDNISOLONE [Concomitant]
  15. RAMIPRIL [Concomitant]
  16. SPIRONOLACTONE [Concomitant]
  17. THIAMINE (THIAMINE) [Concomitant]
  18. VITAMIN B CONCENTRATES [Concomitant]
  19. PHYTONADIONE [Concomitant]

REACTIONS (2)
  - RASH MACULAR [None]
  - TOXIC EPIDERMAL NECROLYSIS [None]
